FAERS Safety Report 6249871-7 (Version None)
Quarter: 2009Q2

REPORT INFORMATION
  Report Type: 
  Country: None (occurrence: None)
  Receive Date: 20090629
  Receipt Date: 20090616
  Transmission Date: 20091009
  Serious: Yes (Hospitalization, Other)
  Sender: FDA-Public Use
  Company Number: GB-PFIZER INC-2009216998

PATIENT
  Age: 21 Year

DRUGS (3)
  1. HYDROCORTISONE AND HYDROCORTISONE ACETATE AND HYDROCORTISONE CIPIONATE [Suspect]
     Indication: COLITIS ULCERATIVE
     Dosage: 150 MG, 1X/DAY
     Route: 054
  2. AZATHIOPRINE [Suspect]
     Indication: COLITIS ULCERATIVE
     Dosage: 1.25 MG/KG, 1X/DAY
     Dates: start: 20050901
  3. HYDROCORTISONE [Concomitant]
     Indication: COLITIS ULCERATIVE
     Route: 042

REACTIONS (3)
  - LEUKOPENIA [None]
  - PNEUMOCYSTIS JIROVECI PNEUMONIA [None]
  - PNEUMOMEDIASTINUM [None]
